FAERS Safety Report 5722703-9 (Version None)
Quarter: 2008Q2

REPORT INFORMATION
  Report Type: 
  Country: None (occurrence: None)
  Receive Date: 20080429
  Receipt Date: 20070912
  Transmission Date: 20081010
  Serious: No
  Sender: FDA-Public Use
  Company Number: US-ASTRAZENECA-2007UW21603

PATIENT
  Age: 54 Year
  Sex: Female
  Weight: 88.9 kg

DRUGS (12)
  1. NEXIUM [Suspect]
     Indication: GASTRIC PH DECREASED
     Route: 048
     Dates: start: 20070326
  2. NEXIUM [Suspect]
     Indication: PROPHYLAXIS OF NAUSEA AND VOMITING
     Route: 048
     Dates: start: 20070326
  3. NEXIUM [Suspect]
     Indication: PAIN
     Route: 048
     Dates: start: 20070326
  4. NEXIUM [Suspect]
     Route: 048
  5. NEXIUM [Suspect]
     Route: 048
  6. NEXIUM [Suspect]
     Route: 048
  7. ALLEGRA [Concomitant]
  8. RHINOCORT [Concomitant]
  9. AVALIDE [Concomitant]
  10. SINGULAIR [Concomitant]
  11. ASMANEX TWISTHALER [Concomitant]
  12. ALLERGY SHOTS [Concomitant]

REACTIONS (5)
  - GALLBLADDER OPERATION [None]
  - HEADACHE [None]
  - NASAL CONGESTION [None]
  - RHINORRHOEA [None]
  - STOMACH DISCOMFORT [None]
